FAERS Safety Report 4562491-5 (Version None)
Quarter: 2005Q1

REPORT INFORMATION
  Report Type: 
  Country: None (occurrence: None)
  Receive Date: 20050112
  Receipt Date: 20050112
  Transmission Date: 20050727
  Serious: Yes (Other)
  Sender: FDA-Public Use
  Company Number: None

PATIENT
  Sex: Female
  Weight: 76.6579 kg

DRUGS (2)
  1. MYSOLINE [Suspect]
     Indication: EPILEPSY
     Dosage: [YEARS]
  2. DILANTIN [Concomitant]

REACTIONS (4)
  - CONDITION AGGRAVATED [None]
  - CONVULSION [None]
  - DRUG EFFECT DECREASED [None]
  - PHARMACEUTICAL PRODUCT COMPLAINT [None]
